FAERS Safety Report 8227929-0 (Version None)
Quarter: 2012Q1

REPORT INFORMATION
  Report Type: 
  Country: None (occurrence: None)
  Receive Date: 20120322
  Receipt Date: 20120320
  Transmission Date: 20120608
  Serious: Yes (Life-Threatening)
  Sender: FDA-Public Use
  Company Number: PHHY2011GB78231

PATIENT
  Age: 64 Year
  Sex: Male
  Weight: 70 kg

DRUGS (15)
  1. PREDNISOLONE [Concomitant]
  2. CITALOPRAM HYDROBROMIDE [Concomitant]
  3. ALBUTEROL [Concomitant]
  4. PERINDOPRIL ERBUMINE [Concomitant]
  5. SIMVASTATIN [Concomitant]
  6. FLUTICASONE PROPIONATE/SALMETEROL [Concomitant]
  7. AMLODIPINE BESYLATE [Concomitant]
  8. LEFLUNOMIDE [Suspect]
     Indication: RHEUMATOID ARTHRITIS
     Dosage: 10 MG, UNK
     Route: 048
     Dates: start: 20110707
  9. BENDROFLUMETHIAZIDE [Concomitant]
  10. OMEPRAZOLE [Concomitant]
  11. TAMSULOSIN HCL [Concomitant]
  12. TIOTROPIUM BROMID [Concomitant]
  13. NAPROXEN [Concomitant]
  14. PREGABALIN [Concomitant]
  15. ASPIRIN [Concomitant]

REACTIONS (1)
  - ISCHAEMIC STROKE [None]
